FAERS Safety Report 6366576-2 (Version None)
Quarter: 2009Q3

REPORT INFORMATION
  Report Type: 
  Country: None (occurrence: None)
  Receive Date: 20090921
  Receipt Date: 20090916
  Transmission Date: 20100115
  Serious: Yes (Death, Life-Threatening, Hospitalization)
  Sender: FDA-Public Use
  Company Number: DE-BRISTOL-MYERS SQUIBB COMPANY-14784953

PATIENT
  Age: 60 Year
  Sex: Female
  Weight: 67 kg

DRUGS (4)
  1. ERBITUX [Suspect]
     Indication: COLON CANCER
     Route: 042
     Dates: start: 20090818, end: 20090902
  2. OXALIPLATIN [Suspect]
     Indication: COLON CANCER
     Route: 042
     Dates: start: 20090825, end: 20090902
  3. FLUOROURACIL [Suspect]
     Indication: COLON CANCER
     Route: 042
     Dates: start: 20090825, end: 20090902
  4. CALCIUM FOLINATE [Suspect]
     Indication: COLON CANCER
     Route: 042
     Dates: start: 20090825, end: 20090902

REACTIONS (4)
  - ANAEMIA [None]
  - DEATH [None]
  - INFUSION RELATED REACTION [None]
  - JAUNDICE [None]
